FAERS Safety Report 24814131 (Version 4)
Quarter: 2025Q1

REPORT INFORMATION
  Report Type: Spontaneous
  Country: US (occurrence: US)
  Receive Date: 20250107
  Receipt Date: 20250110
  Transmission Date: 20250408
  Serious: Yes (Hospitalization)
  Sender: ROCHE
  Company Number: US-ROCHE-10000173289

PATIENT
  Age: 43 Year
  Sex: Male

DRUGS (20)
  1. ALECENSA [Suspect]
     Active Substance: ALECTINIB HYDROCHLORIDE
     Indication: Lung neoplasm malignant
     Dosage: 4 CAPSULE BY MOUTH
     Route: 048
     Dates: start: 20241207
  2. ASPIRIN [Concomitant]
     Active Substance: ASPIRIN
  3. ATORVASTATIN [Concomitant]
     Active Substance: ATORVASTATIN
  4. COLCHICINE [Concomitant]
     Active Substance: COLCHICINE
  5. DEXAMETHASONE [Concomitant]
     Active Substance: DEXAMETHASONE
  6. ELIQUIS [Concomitant]
     Active Substance: APIXABAN
  7. ENOXAPARIN [Concomitant]
     Active Substance: ENOXAPARIN
  8. FAMOTIDINE [Concomitant]
     Active Substance: FAMOTIDINE
  9. FOLIC ACID [Concomitant]
     Active Substance: FOLIC ACID
  10. GABAPENTIN [Concomitant]
     Active Substance: GABAPENTIN
  11. IBUPROFEN [Concomitant]
     Active Substance: IBUPROFEN
  12. Lidoderm DIS [Concomitant]
  13. XANAX [Concomitant]
     Active Substance: ALPRAZOLAM
  14. OXYCODONE [Concomitant]
     Active Substance: OXYCODONE
  15. ONDANSETRON [Concomitant]
     Active Substance: ONDANSETRON
  16. LORATADINE [Concomitant]
     Active Substance: LORATADINE
  17. TEMAZEPAM [Concomitant]
     Active Substance: TEMAZEPAM
  18. DOCUSATE [Concomitant]
     Active Substance: DOCUSATE
  19. VALACYCLOVIR [Concomitant]
     Active Substance: VALACYCLOVIR HYDROCHLORIDE
  20. LOPERAMIDE [Concomitant]
     Active Substance: LOPERAMIDE

REACTIONS (2)
  - Vomiting [Unknown]
  - Dehydration [Unknown]

NARRATIVE: CASE EVENT DATE: 20241209
